FAERS Safety Report 23492285 (Version 3)
Quarter: 2024Q1

REPORT INFORMATION
  Report Type: Report from Study
  Country: CA (occurrence: CA)
  Receive Date: 20240207
  Receipt Date: 20240226
  Transmission Date: 20240409
  Serious: Yes (Other)
  Sender: FDA-Public Use
  Company Number: CA-Merck Healthcare KGaA-2024005636

PATIENT
  Age: 38 Year
  Sex: Female

DRUGS (4)
  1. MAVENCLAD [Suspect]
     Active Substance: CLADRIBINE
     Indication: Multiple sclerosis
     Dosage: YEAR ONE WEEK ONE
     Route: 048
     Dates: start: 20221013
  2. MAVENCLAD [Suspect]
     Active Substance: CLADRIBINE
     Dosage: YEAR ONE WEEK FIVE
     Route: 048
     Dates: start: 20221116
  3. MAVENCLAD [Suspect]
     Active Substance: CLADRIBINE
     Dosage: YEAR TWO WEEK ONE: TWO TABLETS ON DAYS 1 TO 3 AND ONE TABLET ON DAYS 4 AND 5.
     Route: 048
  4. MAVENCLAD [Suspect]
     Active Substance: CLADRIBINE
     Dosage: YEAR TWO WEEK FIVE: TWO TABLETS ON DAYS 1 TO 3 AND ONE TABLET ON DAYS 4 AND 5.
     Route: 048

REACTIONS (18)
  - Bradycardia [Unknown]
  - Neuropathy peripheral [Unknown]
  - Fatigue [Not Recovered/Not Resolved]
  - Nausea [Not Recovered/Not Resolved]
  - Skin burning sensation [Unknown]
  - Cough [Unknown]
  - Dysphonia [Unknown]
  - Dizziness [Unknown]
  - Migraine [Unknown]
  - Brain fog [Unknown]
  - Insomnia [Unknown]
  - Multiple sclerosis relapse [Unknown]
  - Stress [Unknown]
  - White blood cell count decreased [Unknown]
  - Pruritus [Unknown]
  - Lymphocyte count decreased [Unknown]
  - Rash papular [Unknown]
  - Genital rash [Unknown]

NARRATIVE: CASE EVENT DATE: 20240212
